FAERS Safety Report 7111118-7 (Version None)
Quarter: 2010Q4

REPORT INFORMATION
  Report Type: 
  Country: None (occurrence: None)
  Receive Date: 20101118
  Receipt Date: 20101116
  Transmission Date: 20110411
  Serious: Yes (Death)
  Sender: FDA-Public Use
  Company Number: FR-GILEAD-2010-0033660

PATIENT
  Age: 61 Year
  Sex: Male
  Weight: 112 kg

DRUGS (6)
  1. TRUVADA [Suspect]
     Indication: HIV INFECTION
     Dates: start: 20100428, end: 20100509
  2. DARUNAVIR [Suspect]
     Indication: HIV INFECTION
     Dates: start: 20100428, end: 20100509
  3. NORVIR [Suspect]
     Indication: HIV INFECTION
     Dates: start: 20100428, end: 20100509
  4. TRIMEBUTINE [Suspect]
     Indication: FLATULENCE
     Dates: start: 20100414, end: 20100509
  5. IMODIUM [Suspect]
     Indication: DIARRHOEA
     Dates: start: 20100507, end: 20100509
  6. VOGALENE [Suspect]
     Indication: VOMITING
     Dates: start: 20100507, end: 20100509

REACTIONS (1)
  - DEATH [None]
